APPROVED DRUG PRODUCT: REGLAN ODT
Active Ingredient: METOCLOPRAMIDE HYDROCHLORIDE
Strength: EQ 5MG BASE
Dosage Form/Route: TABLET, ORALLY DISINTEGRATING;ORAL
Application: N021793 | Product #001
Applicant: MEDA PHARMACEUTICALS INC
Approved: Jun 10, 2005 | RLD: No | RS: No | Type: DISCN